FAERS Safety Report 8362313-0 (Version None)
Quarter: 2012Q2

REPORT INFORMATION
  Report Type: 
  Country: None (occurrence: None)
  Receive Date: 20120515
  Receipt Date: 20120504
  Transmission Date: 20120825
  Serious: Yes (Hospitalization)
  Sender: FDA-Public Use
  Company Number: US-ELI_LILLY_AND_COMPANY-US201203005795

PATIENT

DRUGS (1)
  1. FORTEO [Suspect]

REACTIONS (3)
  - PNEUMONIA [None]
  - CONVULSION [None]
  - NAUSEA [None]
